FAERS Safety Report 15059173 (Version 2)
Quarter: 2018Q3

REPORT INFORMATION
  Report Type: Spontaneous
  Country: JP (occurrence: JP)
  Receive Date: 20180625
  Receipt Date: 20180702
  Transmission Date: 20181010
  Serious: Yes (Other)
  Sender: FDA-Public Use
  Company Number: JP-PFIZER INC-2018253032

PATIENT
  Age: 78 Year
  Sex: Male

DRUGS (3)
  1. LEUCOVORIN /00566701/ [Concomitant]
     Active Substance: LEUCOVORIN
     Indication: COLORECTAL CANCER
     Dosage: UNK, CYCLIC (RECEIVED TEN CYCLES FOR 20 WEEKS)
  2. OXALIPLATIN. [Suspect]
     Active Substance: OXALIPLATIN
     Indication: COLORECTAL CANCER
     Dosage: UNK, CYCLIC (RECEIVED TEN CYCLES FOR 20 WEEKS)
  3. 5?FLUOROURACIL /00098801/ [Concomitant]
     Active Substance: FLUOROURACIL
     Indication: COLORECTAL CANCER
     Dosage: UNK, CYCLIC (RECEIVED TEN CYCLES FOR 20 WEEKS)

REACTIONS (2)
  - Varices oesophageal [Recovered/Resolved]
  - Venoocclusive liver disease [Not Recovered/Not Resolved]
